FAERS Safety Report 5657159-8 (Version None)
Quarter: 2008Q1

REPORT INFORMATION
  Report Type: 
  Country: None (occurrence: None)
  Receive Date: 20080310
  Receipt Date: 20080228
  Transmission Date: 20080703
  Serious: Yes (Hospitalization, Disabling, Other)
  Sender: FDA-Public Use
  Company Number: US-MERCK-0710USA04013

PATIENT
  Age: 57 Year
  Sex: Female

DRUGS (1)
  1. FOSAMAX [Suspect]
     Indication: OSTEOPOROSIS
     Route: 048
     Dates: start: 19990101, end: 20060101

REACTIONS (10)
  - BONE DISORDER [None]
  - DENTAL CARIES [None]
  - DEPRESSION [None]
  - GASTROOESOPHAGEAL REFLUX DISEASE [None]
  - ORAL DISORDER [None]
  - OSTEOMYELITIS [None]
  - OSTEONECROSIS [None]
  - PERIODONTITIS [None]
  - SINUS DISORDER [None]
  - TREATMENT NONCOMPLIANCE [None]
